FAERS Safety Report 4380451-4 (Version None)
Quarter: 2004Q2

REPORT INFORMATION
  Report Type: 
  Country: None (occurrence: None)
  Receive Date: 20040614
  Receipt Date: 20040608
  Transmission Date: 20050107
  Serious: Yes (Life-Threatening)
  Sender: FDA-Public Use
  Company Number: 2004-06-0355

PATIENT
  Age: 35 Year
  Sex: Male
  Weight: 63 kg

DRUGS (2)
  1. REBETOL [Suspect]
     Indication: CHRONIC HEPATITIS
     Dosage: 1000 MG QD ORAL
     Route: 048
     Dates: start: 20040308, end: 20040510
  2. PEGASYS [Suspect]
     Indication: CHRONIC HEPATITIS
     Dosage: 180 UG SC
     Route: 058
     Dates: start: 20040308, end: 20040507

REACTIONS (1)
  - BONE MARROW DEPRESSION [None]
